FAERS Safety Report 7691855-6 (Version None)
Quarter: 2011Q3

REPORT INFORMATION
  Report Type: 
  Country: None (occurrence: None)
  Receive Date: 20110818
  Receipt Date: 20110815
  Transmission Date: 20111222
  Serious: Yes (Other)
  Sender: FDA-Public Use
  Company Number: US-ABBOTT-11P-163-0846954-00

PATIENT
  Age: 68 Year
  Sex: Male

DRUGS (5)
  1. HYZAAR [Concomitant]
     Indication: HYPERTENSION
  2. NEURONTIN [Concomitant]
     Indication: PAIN
  3. CYMBALTA [Concomitant]
     Indication: DEPRESSION
  4. SYNTHROID [Concomitant]
     Indication: HYPOTHYROIDISM
  5. HUMIRA [Suspect]
     Indication: PSORIASIS

REACTIONS (1)
  - FISTULA [None]
